FAERS Safety Report 18042431 (Version 1)
Quarter: 2020Q3

REPORT INFORMATION
  Report Type: Spontaneous
  Country: US (occurrence: US)
  Receive Date: 20200716
  Receipt Date: 20200716
  Transmission Date: 20201103
  Serious: Yes (Life-Threatening)
  Sender: FDA-Public Use
  Company Number: None

PATIENT
  Age: 62 Year
  Sex: Female

DRUGS (2)
  1. PACLITAXEL (PACLITAXEL 30MG/5ML INJ, CONC) [Suspect]
     Active Substance: PACLITAXEL
     Indication: OVARIAN CANCER
     Dosage: 341 MG (IN D5% 500ML) MG ONCE IV
     Route: 042
     Dates: start: 20190301, end: 20190305
  2. PACLITAXEL (PACLITAXEL 30MG/5ML INJ, CONC) [Suspect]
     Active Substance: PACLITAXEL
     Indication: METASTASES TO PERITONEUM
     Dosage: 341 MG (IN D5% 500ML) MG ONCE IV
     Route: 042
     Dates: start: 20190301, end: 20190305

REACTIONS (5)
  - Infusion related reaction [None]
  - Hypertension [None]
  - Heart rate increased [None]
  - Erythema [None]
  - Respiratory depression [None]

NARRATIVE: CASE EVENT DATE: 20190305
